FAERS Safety Report 6712662-4 (Version None)
Quarter: 2010Q2

REPORT INFORMATION
  Report Type: 
  Country: None (occurrence: None)
  Receive Date: 20100505
  Receipt Date: 20100505
  Transmission Date: 20101027
  Serious: Yes (Hospitalization)
  Sender: FDA-Public Use
  Company Number: None

PATIENT
  Age: 88 Year
  Sex: Male
  Weight: 68 kg

DRUGS (8)
  1. SIMVASTATIN [Suspect]
     Indication: HYPERLIPIDAEMIA
     Dosage: 80MG QAM PO
     Route: 048
  2. OMEPRAZOLE [Concomitant]
  3. BYSTOLIC [Concomitant]
  4. LASIX [Concomitant]
  5. AMLODIPINE [Concomitant]
  6. PROAIR HFA [Concomitant]
  7. RANEXA [Concomitant]
  8. HYDRALAZINE HCL [Concomitant]

REACTIONS (1)
  - RHABDOMYOLYSIS [None]
